FAERS Safety Report 26001158 (Version 1)
Quarter: 2025Q4

REPORT INFORMATION
  Report Type: Spontaneous
  Country: CN (occurrence: CN)
  Receive Date: 20251105
  Receipt Date: 20251105
  Transmission Date: 20260118
  Serious: Yes (Hospitalization)
  Sender: PFIZER
  Company Number: CN-PFIZER INC-PV202500128260

PATIENT
  Age: 91 Year
  Sex: Male
  Weight: 60 kg

DRUGS (6)
  1. LINEZOLID [Suspect]
     Active Substance: LINEZOLID
     Indication: Bile duct stone
     Dosage: 300 ML, 2X/DAY
     Route: 041
     Dates: start: 20251023, end: 20251027
  2. LINEZOLID [Suspect]
     Active Substance: LINEZOLID
     Indication: Cholecystitis acute
  3. LINEZOLID [Suspect]
     Active Substance: LINEZOLID
     Indication: Sepsis
  4. CEFOPERAZONE SODIUM\SULBACTAM SODIUM [Concomitant]
     Active Substance: CEFOPERAZONE SODIUM\SULBACTAM SODIUM
     Indication: Bile duct stone
     Dosage: 3 G, 3X/DAY
     Route: 041
     Dates: start: 20251023
  5. CEFOPERAZONE SODIUM\SULBACTAM SODIUM [Concomitant]
     Active Substance: CEFOPERAZONE SODIUM\SULBACTAM SODIUM
     Indication: Cholecystitis acute
  6. CEFOPERAZONE SODIUM\SULBACTAM SODIUM [Concomitant]
     Active Substance: CEFOPERAZONE SODIUM\SULBACTAM SODIUM
     Indication: Sepsis

REACTIONS (2)
  - Platelet count decreased [Unknown]
  - Drug level increased [Unknown]

NARRATIVE: CASE EVENT DATE: 20251026
